FAERS Safety Report 5337461-X (Version None)
Quarter: 2007Q2

REPORT INFORMATION
  Report Type: 
  Country: None (occurrence: None)
  Receive Date: 20070524
  Receipt Date: 20070508
  Transmission Date: 20071010
  Serious: Yes (Disabling)
  Sender: FDA-Public Use
  Company Number: VNL_0512_2007

PATIENT
  Sex: Female

DRUGS (3)
  1. APO-GO (APO-GO PFS) [Suspect]
     Indication: PARKINSON'S DISEASE
     Dosage: (40 MG SUBCUTANEOUS)
     Route: 058
     Dates: start: 20061101, end: 20070101
  2. APO-GO (APO-GO PFS) [Suspect]
     Indication: PARKINSON'S DISEASE
     Dosage: (SUBCUTANEOUS)
     Route: 058
     Dates: start: 20070101, end: 20070201
  3. SINEMET [Concomitant]

REACTIONS (2)
  - DIARRHOEA [None]
  - PRURITUS [None]
